FAERS Safety Report 7846457-5 (Version None)
Quarter: 2011Q4

REPORT INFORMATION
  Report Type: 
  Country: None (occurrence: None)
  Receive Date: 20111025
  Receipt Date: 20111025
  Transmission Date: 20120403
  Serious: Yes (Other)
  Sender: FDA-Public Use
  Company Number: None

PATIENT
  Age: 25 Year
  Sex: Female

DRUGS (1)
  1. HYDROCHLOROTHIAZIDE [Suspect]
     Dosage: 12.5MG
     Route: 048
     Dates: start: 20111011, end: 20111012

REACTIONS (2)
  - HYPERSENSITIVITY [None]
  - ANAPHYLACTIC REACTION [None]
